FAERS Safety Report 17299272 (Version 1)
Quarter: 2020Q1

REPORT INFORMATION
  Report Type: Spontaneous
  Country: US (occurrence: US)
  Receive Date: 20200121
  Receipt Date: 20200121
  Transmission Date: 20200409
  Serious: Yes (Life-Threatening)
  Sender: FDA-Public Use
  Company Number: None

PATIENT
  Age: 73 Year
  Sex: Female
  Weight: 68 kg

DRUGS (2)
  1. VENOFER [Suspect]
     Active Substance: IRON SUCROSE
     Indication: ANAEMIA POSTOPERATIVE
     Route: 042
     Dates: start: 20200104, end: 20200106
  2. VENOFER [Suspect]
     Active Substance: IRON SUCROSE
     Indication: THROMBOCYTOPENIA
     Route: 042
     Dates: start: 20200104, end: 20200106

REACTIONS (3)
  - Cardiac arrest [None]
  - Infusion related reaction [None]
  - Ventricular fibrillation [None]

NARRATIVE: CASE EVENT DATE: 20200106
